FAERS Safety Report 24369672 (Version 1)
Quarter: 2024Q3

REPORT INFORMATION
  Report Type: Report from Study
  Country: US (occurrence: US)
  Receive Date: 20240927
  Receipt Date: 20240927
  Transmission Date: 20241017
  Serious: No
  Sender: ROCHE
  Company Number: US-ROCHE-3474664

PATIENT
  Age: 77 Year
  Sex: Male
  Weight: 104.33 kg

DRUGS (4)
  1. LUCENTIS [Suspect]
     Active Substance: RANIBIZUMAB
     Indication: Retinal vein occlusion
     Dosage: NO
     Route: 050
     Dates: start: 2018, end: 202211
  2. VABYSMO [Suspect]
     Active Substance: FARICIMAB-SVOA
     Indication: Retinal vein occlusion
     Dosage: 6MG PER 0.05ML INTRAVITREAL INJECTION EVERY 4 WEEKS, EVERY 5,6,7 WEEKS, DATE OF TREATMENT: 08/DEC/20
     Route: 050
     Dates: start: 202212
  3. VABYSMO [Suspect]
     Active Substance: FARICIMAB-SVOA
     Indication: Retinal disorder
  4. EYLEA [Concomitant]
     Active Substance: AFLIBERCEPT
     Dosage: FOR SIX TO EIGHT MONTHS

REACTIONS (2)
  - Off label use [Unknown]
  - No adverse event [Unknown]
